FAERS Safety Report 8274354-2 (Version None)
Quarter: 2012Q2

REPORT INFORMATION
  Report Type: 
  Country: None (occurrence: None)
  Receive Date: 20120411
  Receipt Date: 20120402
  Transmission Date: 20120825
  Serious: Yes (Death)
  Sender: FDA-Public Use
  Company Number: US-ROCHE-1051539

PATIENT
  Sex: Female

DRUGS (9)
  1. ETODOLAC [Concomitant]
     Route: 048
  2. XOLAIR [Suspect]
     Indication: PRODUCT USED FOR UNKNOWN INDICATION
     Route: 030
  3. ADVAIR DISKUS 100/50 [Concomitant]
  4. MEDROL [Concomitant]
  5. ATARAX [Concomitant]
  6. XOPENEX [Concomitant]
  7. MAXAIR [Concomitant]
  8. TRAMADOL HCL [Concomitant]
     Route: 048
  9. HYDROCHLOROTHIAZIDE [Concomitant]

REACTIONS (1)
  - DEATH [None]
